FAERS Safety Report 9655940 (Version 1)
Quarter: 2013Q4

REPORT INFORMATION
  Report Type: Spontaneous
  Country: US (occurrence: US)
  Receive Date: 20131030
  Receipt Date: 20131030
  Transmission Date: 20140711
  Serious: No
  Sender: FDA-Public Use
  Company Number: US-B.I. PHARMACEUTICALS,INC./RIDGEFIELD-2013-BI-33567BP

PATIENT
  Age: 79 Year
  Sex: Female

DRUGS (5)
  1. AGGRENOX [Suspect]
     Indication: TRANSIENT ISCHAEMIC ATTACK
     Dosage: DOSE PER APPLICATION: 25 MG / 200 MG; DAILY DOSE: 50 MG/ 400 MG
     Route: 048
     Dates: start: 2003, end: 201306
  2. MULTAQ [Concomitant]
     Route: 048
  3. APRISO [Concomitant]
     Indication: CROHN^S DISEASE
     Route: 048
  4. XARELTO [Concomitant]
     Route: 048
  5. METOPROLOL [Concomitant]
     Route: 048

REACTIONS (1)
  - Atrial fibrillation [Recovered/Resolved]
